FAERS Safety Report 8181864-5 (Version None)
Quarter: 2012Q1

REPORT INFORMATION
  Report Type: 
  Country: None (occurrence: None)
  Receive Date: 20120302
  Receipt Date: 20120301
  Transmission Date: 20120608
  Serious: No
  Sender: FDA-Public Use
  Company Number: US-PFIZER INC-2012055873

PATIENT
  Sex: Female

DRUGS (3)
  1. LIPITOR [Suspect]
     Dosage: UNK, 1X/DAY
  2. SYNTHROID [Concomitant]
     Indication: THYROID DISORDER
     Dosage: UNK, 1X/DAY
  3. ACETYLSALICYLIC ACID SRT [Suspect]
     Dosage: UNK, 1X/DAY

REACTIONS (1)
  - PAIN IN EXTREMITY [None]
